FAERS Safety Report 14915027 (Version 1)
Quarter: 2018Q2

REPORT INFORMATION
  Report Type: Spontaneous
  Country: CA (occurrence: CA)
  Receive Date: 20180518
  Receipt Date: 20180518
  Transmission Date: 20180711
  Serious: Yes (Death)
  Sender: FDA-Public Use
  Company Number: CA-PFIZER INC-2017452239

PATIENT
  Age: 50 Year
  Sex: Female

DRUGS (2)
  1. IBRANCE [Suspect]
     Active Substance: PALBOCICLIB
     Indication: BREAST CANCER METASTATIC
     Dosage: 125 MG, CYCLIC (ONCE DAILY FOR 21 DAYS, FOLLOWED BY 7 DAYS OFF)
     Route: 048
  2. LETROZOLE. [Concomitant]
     Active Substance: LETROZOLE
     Dosage: UNK

REACTIONS (2)
  - Death [Fatal]
  - Product use in unapproved indication [Unknown]
